FAERS Safety Report 11355221 (Version 1)
Quarter: 2015Q3

REPORT INFORMATION
  Report Type: Spontaneous
  Country: US (occurrence: US)
  Receive Date: 20150807
  Receipt Date: 20150807
  Transmission Date: 20151125
  Serious: Yes (Other)
  Sender: FDA-Public Use
  Company Number: PHEH2015US014946

PATIENT
  Sex: Female
  Weight: 70 kg

DRUGS (9)
  1. LETROZOLE. [Suspect]
     Active Substance: LETROZOLE
     Indication: BREAST CANCER
     Dosage: 1 DF, QD
     Route: 048
  2. HUMALOG [Concomitant]
     Active Substance: INSULIN LISPRO
     Indication: PRODUCT USED FOR UNKNOWN INDICATION
     Dosage: 30 UNIT AS DIRECTED, TID
     Route: 058
  3. SYNTHROID [Concomitant]
     Active Substance: LEVOTHYROXINE SODIUM
     Indication: PRODUCT USED FOR UNKNOWN INDICATION
     Dosage: 1 DF, QD
     Route: 048
  4. PALBOCICLIB [Suspect]
     Active Substance: PALBOCICLIB
     Indication: BREAST CANCER
     Dosage: 1 DF, QD
     Route: 048
  5. ACYCLOVIR. [Concomitant]
     Active Substance: ACYCLOVIR
     Indication: PRODUCT USED FOR UNKNOWN INDICATION
     Dosage: 400 MG, TID
     Route: 048
  6. AFINITOR [Suspect]
     Active Substance: EVEROLIMUS
     Indication: BREAST CANCER
     Dosage: 1 DF, QD
     Route: 048
     Dates: start: 201402
  7. VALACYCLOVIR [Concomitant]
     Active Substance: VALACYCLOVIR HYDROCHLORIDE
     Indication: PRODUCT USED FOR UNKNOWN INDICATION
     Dosage: 1 DF, Q12H
     Route: 048
  8. LANTUS [Concomitant]
     Active Substance: INSULIN GLARGINE
     Indication: PRODUCT USED FOR UNKNOWN INDICATION
     Dosage: 60 U, HS
     Route: 058
  9. AROMASIN [Suspect]
     Active Substance: EXEMESTANE
     Indication: BREAST CANCER
     Route: 065
     Dates: start: 201402

REACTIONS (22)
  - Spinal osteoarthritis [Unknown]
  - Back pain [Unknown]
  - Oral pain [Recovering/Resolving]
  - Nail discolouration [Unknown]
  - Musculoskeletal chest pain [Unknown]
  - Cellulitis [Recovered/Resolved]
  - Fall [Unknown]
  - Musculoskeletal pain [Unknown]
  - Radiculopathy [Unknown]
  - Cough [Unknown]
  - Upper respiratory tract infection [Unknown]
  - Dyspnoea [Unknown]
  - Skin lesion [Recovering/Resolving]
  - Diarrhoea [Unknown]
  - Peripheral swelling [Recovering/Resolving]
  - Dyspnoea exertional [Unknown]
  - Pleural effusion [Unknown]
  - Eating disorder [Unknown]
  - Pulmonary mass [Unknown]
  - Nasopharyngitis [Unknown]
  - Injury [Unknown]
  - Vomiting [Unknown]
